FAERS Safety Report 9047281 (Version 1)
Quarter: 2013Q1

REPORT INFORMATION
  Report Type: Spontaneous
  Country: PR (occurrence: PR)
  Receive Date: 20130131
  Receipt Date: 20130131
  Transmission Date: 20140127
  Serious: No
  Sender: FDA-Public Use
  Company Number: PR-ABBOTT-12P-131-0980689-00

PATIENT
  Age: 53 None
  Sex: Female
  Weight: 68.1 kg

DRUGS (13)
  1. HUMIRA [Suspect]
     Indication: RHEUMATOID ARTHRITIS
     Route: 058
     Dates: start: 20120228, end: 20120522
  2. HUMIRA [Suspect]
     Route: 058
     Dates: end: 20120911
  3. METHOTREXATE [Concomitant]
     Indication: RHEUMATOID ARTHRITIS
     Dosage: 30MGS ONCE A WEEK
     Route: 048
     Dates: start: 201108
  4. TRAMADOL [Concomitant]
     Indication: PRODUCT USED FOR UNKNOWN INDICATION
     Dosage: 200MG
     Route: 048
     Dates: start: 201108
  5. PLAQUENIL [Concomitant]
     Indication: PRODUCT USED FOR UNKNOWN INDICATION
     Dosage: 400MG
     Route: 048
     Dates: start: 201108
  6. NEURONTIN [Concomitant]
     Indication: PRODUCT USED FOR UNKNOWN INDICATION
     Dosage: 600MG, AT BEDTIME
     Route: 048
     Dates: start: 201108
  7. RELAFEN [Concomitant]
     Indication: PRODUCT USED FOR UNKNOWN INDICATION
     Dosage: 1500MG
     Route: 048
     Dates: start: 201108
  8. PREDNISONE [Concomitant]
     Indication: PRODUCT USED FOR UNKNOWN INDICATION
     Dosage: 1 TABLET DAILY, 20MG
     Route: 048
     Dates: start: 201108
  9. FOLIC ACID [Concomitant]
     Indication: PRODUCT USED FOR UNKNOWN INDICATION
     Dosage: 1 TABLET DAILY, 1 MG
     Route: 048
     Dates: start: 201108
  10. CELEXA [Concomitant]
     Indication: DEPRESSION
     Dosage: 1 TABLET DAILY, 20 MG
     Route: 048
     Dates: start: 201201
  11. RESTORIL [Concomitant]
     Indication: DEPRESSION
     Dosage: 30MG, AT BEDTIME
     Route: 048
     Dates: start: 201201
  12. KLONOPIN [Concomitant]
     Indication: DEPRESSION
     Dosage: 1MG DAILY
     Route: 048
     Dates: start: 201201
  13. ELAVIL [Concomitant]
     Indication: DEPRESSION
     Dosage: 25MG, AT BEDTIME
     Route: 048
     Dates: start: 201201

REACTIONS (4)
  - Pyrexia [Recovered/Resolved]
  - Viral infection [Recovered/Resolved]
  - Headache [Recovered/Resolved]
  - Nausea [Recovered/Resolved]
